FAERS Safety Report 14784693 (Version 3)
Quarter: 2018Q3

REPORT INFORMATION
  Report Type: Spontaneous
  Country: US (occurrence: US)
  Receive Date: 20180420
  Receipt Date: 20180921
  Transmission Date: 20181010
  Serious: Yes (Hospitalization)
  Sender: FDA-Public Use
  Company Number: US-ALLERGAN-1800429US

PATIENT
  Age: 34 Year
  Sex: Female
  Weight: 59 kg

DRUGS (10)
  1. HYDROCODONE/HOMATROPINE [Concomitant]
     Active Substance: HOMATROPINE METHYLBROMIDE\HYDROCODONE BITARTRATE
     Indication: PRODUCT USED FOR UNKNOWN INDICATION
     Dosage: 5 ML, Q6HR
     Route: 065
     Dates: start: 20140821
  2. BOTOX COSMETIC [Suspect]
     Active Substance: ONABOTULINUMTOXINA
     Dosage: 18 UNITS, SINGLE
     Route: 030
     Dates: start: 20131121, end: 20131121
  3. ZOFRAN [Concomitant]
     Active Substance: ONDANSETRON HYDROCHLORIDE
     Indication: NAUSEA
     Dosage: 4 MG, Q6HR
     Route: 048
  4. PRENATAL VITAMINS [Concomitant]
     Active Substance: VITAMINS
     Indication: PRODUCT USED FOR UNKNOWN INDICATION
     Dosage: UNK
     Dates: end: 20140211
  5. CETIRIZINE HCL [Concomitant]
     Active Substance: CETIRIZINE HYDROCHLORIDE
     Indication: PRODUCT USED FOR UNKNOWN INDICATION
     Dosage: UNK UNK, UNKNOWN
     Route: 048
  6. BOTOX COSMETIC [Suspect]
     Active Substance: ONABOTULINUMTOXINA
     Indication: SKIN WRINKLING
     Dosage: 10 UNITS, SINGLE
     Route: 030
     Dates: start: 20131121, end: 20131121
  7. DELTASONE [Concomitant]
     Active Substance: PREDNISONE
     Indication: PRODUCT USED FOR UNKNOWN INDICATION
     Dosage: 2 DF, QD
     Route: 048
     Dates: start: 20120126, end: 20140825
  8. BOTOX COSMETIC [Suspect]
     Active Substance: ONABOTULINUMTOXINA
     Indication: SKIN WRINKLING
     Dosage: 14 UNITS, SINGLE
     Route: 030
     Dates: start: 20131121, end: 20131121
  9. BOTOX COSMETIC [Suspect]
     Active Substance: ONABOTULINUMTOXINA
     Indication: SKIN WRINKLING
     Dosage: 5 UNITS, SINGLE
     Route: 030
     Dates: start: 20131121, end: 20131121
  10. FLUCONAZOLE. [Concomitant]
     Active Substance: FLUCONAZOLE
     Indication: PRODUCT USED FOR UNKNOWN INDICATION
     Dosage: UNK UNK, QD
     Route: 065
     Dates: start: 20140821, end: 20140825

REACTIONS (49)
  - Hypokalaemia [Unknown]
  - Autoimmune disorder [Unknown]
  - Vaginal infection [Unknown]
  - Palpitations [Unknown]
  - Decreased appetite [Unknown]
  - Vomiting [Unknown]
  - Dysphagia [Recovered/Resolved]
  - Dysgeusia [Unknown]
  - Oropharyngeal pain [Unknown]
  - Back pain [Unknown]
  - Breast tenderness [Unknown]
  - Dacryostenosis acquired [Unknown]
  - Dry eye [Unknown]
  - Myalgia [Unknown]
  - Muscular weakness [Unknown]
  - Arthralgia [Unknown]
  - Wrong technique in product usage process [Unknown]
  - Dizziness [Unknown]
  - Vision blurred [Recovered/Resolved]
  - Dyspnoea [Unknown]
  - Panic attack [Unknown]
  - Anxiety [Unknown]
  - Pollakiuria [Unknown]
  - Bone pain [Unknown]
  - Hypophagia [Unknown]
  - Diaphragm muscle weakness [Unknown]
  - Paraesthesia [Unknown]
  - Emotional distress [Unknown]
  - Abdominal tenderness [Unknown]
  - Sinusitis [Unknown]
  - Dehydration [Unknown]
  - Facial pain [Unknown]
  - Syncope [Unknown]
  - Nausea [Unknown]
  - Dry mouth [Unknown]
  - Breast mass [Unknown]
  - Vulvovaginal mycotic infection [Unknown]
  - Fatigue [Unknown]
  - Headache [Recovered/Resolved]
  - Asthenia [Recovering/Resolving]
  - Tremor [Unknown]
  - Chest discomfort [Unknown]
  - Pregnancy [Unknown]
  - Upper respiratory tract infection [Unknown]
  - Malaise [Unknown]
  - Chest pain [Unknown]
  - Brain injury [Unknown]
  - Nervous system disorder [Unknown]
  - Pain [Unknown]

NARRATIVE: CASE EVENT DATE: 20131122
